FAERS Safety Report 8551980-4 (Version None)
Quarter: 2012Q3

REPORT INFORMATION
  Report Type: 
  Country: None (occurrence: None)
  Receive Date: 20120730
  Receipt Date: 20120720
  Transmission Date: 20120928
  Serious: Yes (Other)
  Sender: FDA-Public Use
  Company Number: JP-ABBOTT-12P-087-0938353-00

PATIENT
  Sex: Male

DRUGS (5)
  1. LIPACREON [Suspect]
     Indication: PANCREATIC INSUFFICIENCY
     Route: 048
     Dates: start: 20111118, end: 20120404
  2. MIGLITOL [Suspect]
     Indication: DIABETES MELLITUS
     Route: 048
     Dates: start: 20111212, end: 20120302
  3. CAMOSTAT MESILATE [Concomitant]
     Indication: INFLAMMATION
  4. MULTIVITAMIN PRODUCT (INCLUDING MINERAL) [Concomitant]
     Indication: PRODUCT USED FOR UNKNOWN INDICATION
  5. CAMOSTAT MESILATE [Concomitant]
     Indication: PYREXIA

REACTIONS (1)
  - TUMOUR MARKER INCREASED [None]
